FAERS Safety Report 4337707-0 (Version None)
Quarter: 2004Q2

REPORT INFORMATION
  Report Type: 
  Country: None (occurrence: None)
  Receive Date: 20040408
  Receipt Date: 20040326
  Transmission Date: 20050107
  Serious: Yes (Other)
  Sender: FDA-Public Use
  Company Number: S03-341-783

PATIENT
  Age: 70 Year
  Sex: Male

DRUGS (1)
  1. VELCADE [Suspect]
     Indication: MULTIPLE MYELOMA
     Dosage: 2 MG, BIW, INTRAVENOUS BOLUS
     Route: 040
     Dates: start: 20030725, end: 20031117

REACTIONS (4)
  - ATRIAL FIBRILLATION [None]
  - ICHTHYOSIS ACQUIRED [None]
  - NEUROPATHIC PAIN [None]
  - NEUROPATHY [None]
